FAERS Safety Report 4634400-1 (Version None)
Quarter: 2005Q2

REPORT INFORMATION
  Report Type: 
  Country: None (occurrence: None)
  Receive Date: 20050412
  Receipt Date: 20050330
  Transmission Date: 20051028
  Serious: Yes (Other)
  Sender: FDA-Public Use
  Company Number: 2005051927

PATIENT
  Age: 5 Year
  Sex: Male
  Weight: 24.0406 kg

DRUGS (5)
  1. ZYRTEC [Suspect]
     Indication: HYPERSENSITIVITY
     Dosage: 5 MG (1 D)
     Dates: start: 20030101
  2. ALLERGY MEDICATION (ALLERGY MEDICATION) [Concomitant]
  3. MONTELUKAST SODIUM (MONTELUKAST SODIUM) [Concomitant]
  4. FLUTICASONE PROPIONATE [Concomitant]
  5. BUDESONIDE [Concomitant]

REACTIONS (3)
  - DISEASE RECURRENCE [None]
  - SINUS DISORDER [None]
  - SINUSITIS [None]
